FAERS Safety Report 9050627 (Version 3)
Quarter: 2013Q1

REPORT INFORMATION
  Report Type: Report from Study
  Country: DE (occurrence: DE)
  Receive Date: 20130205
  Receipt Date: 20130220
  Transmission Date: 20140127
  Serious: Yes (Life-Threatening, Hospitalization)
  Sender: FDA-Public Use
  Company Number: DE-CELGENEUS-062-21660-13020018

PATIENT
  Age: 37 Year
  Sex: Female
  Weight: 59 kg

DRUGS (4)
  1. ABRAXANE [Suspect]
     Indication: BREAST CANCER
     Route: 041
     Dates: start: 20121122
  2. ABRAXANE [Suspect]
     Route: 041
     Dates: start: 20121220
  3. CYCLOPHOSPHAMIDE [Suspect]
     Indication: BREAST CANCER
     Route: 041
     Dates: start: 20130103, end: 20130117
  4. CYCLOPHOSPHAMIDE [Suspect]
     Route: 041
     Dates: start: 20130131

REACTIONS (1)
  - Neutropenia [Recovered/Resolved]
